FAERS Safety Report 6361779-5 (Version None)
Quarter: 2009Q3

REPORT INFORMATION
  Report Type: 
  Country: None (occurrence: None)
  Receive Date: 20090918
  Receipt Date: 20090904
  Transmission Date: 20100115
  Serious: Yes (Hospitalization, Other)
  Sender: FDA-Public Use
  Company Number: PH-PFIZER INC-2009261376

PATIENT
  Age: 49 Year

DRUGS (6)
  1. DILANTIN [Suspect]
     Indication: CONVULSION
     Dosage: 100 MG, 2X/DAY
     Route: 048
     Dates: start: 20081001
  2. FLUCONAZOLE [Concomitant]
     Dosage: UNK
  3. VANCOMYCIN [Concomitant]
     Dosage: UNK
  4. AMLODIPINE [Concomitant]
     Dosage: UNK
  5. FLUIMUCIL [Concomitant]
     Dosage: UNK
  6. IMIPENEM [Concomitant]
     Dosage: UNK

REACTIONS (2)
  - LYMPHADENITIS [None]
  - PYOMYOSITIS [None]
